FAERS Safety Report 6899200-0 (Version None)
Quarter: 2010Q3

REPORT INFORMATION
  Report Type: 
  Country: None (occurrence: None)
  Receive Date: 20100802
  Receipt Date: 20080206
  Transmission Date: 20110219
  Serious: Yes (Other)
  Sender: FDA-Public Use
  Company Number: US-PFIZER INC-2007104560

PATIENT
  Sex: Female
  Weight: 67.1 kg

DRUGS (3)
  1. LYRICA [Suspect]
     Indication: PAIN
  2. LYRICA [Suspect]
     Indication: LUNG NEOPLASM MALIGNANT
  3. LYRICA [Suspect]
     Indication: BACK PAIN

REACTIONS (2)
  - PAIN [None]
  - THROMBOCYTOPENIA [None]
